FAERS Safety Report 24151846 (Version 1)
Quarter: 2024Q3

REPORT INFORMATION
  Report Type: Spontaneous
  Country: US (occurrence: US)
  Receive Date: 20240730
  Receipt Date: 20240730
  Transmission Date: 20241017
  Serious: Yes (Hospitalization)
  Sender: AMGEN
  Company Number: US-AMGEN-USASP2024148101

PATIENT
  Sex: Male

DRUGS (1)
  1. REPATHA [Suspect]
     Active Substance: EVOLOCUMAB
     Indication: Product used for unknown indication
     Dosage: UNK
     Route: 065
     Dates: start: 202407

REACTIONS (4)
  - Dyspnoea [Unknown]
  - Hypersensitivity [Unknown]
  - Back pain [Unknown]
  - Rash [Unknown]

NARRATIVE: CASE EVENT DATE: 20240701
